FAERS Safety Report 21080618 (Version 1)
Quarter: 2022Q3

REPORT INFORMATION
  Report Type: Spontaneous
  Country: US (occurrence: US)
  Receive Date: 20220714
  Receipt Date: 20220714
  Transmission Date: 20221027
  Serious: No
  Sender: FDA-Public Use
  Company Number: US-RECKITT BENCKISER HEALTHCARE INT LIMITED-RB-082506-2022

PATIENT
  Age: 59 Year
  Sex: Female

DRUGS (1)
  1. MUCINEX DM MAXIMUM STRENGTH [Suspect]
     Active Substance: DEXTROMETHORPHAN HYDROBROMIDE\GUAIFENESIN
     Indication: COVID-19
     Dosage: 2400 MILLIGRAM, QD
     Route: 048
     Dates: start: 20220109, end: 20220112

REACTIONS (6)
  - Heart rate increased [Not Recovered/Not Resolved]
  - Nasal dryness [Recovered/Resolved]
  - Dry skin [Recovered/Resolved]
  - Dry mouth [Recovered/Resolved]
  - Rales [Unknown]
  - Drug effective for unapproved indication [Recovered/Resolved]

NARRATIVE: CASE EVENT DATE: 20220109
